FAERS Safety Report 15210151 (Version 1)
Quarter: 2018Q3

REPORT INFORMATION
  Report Type: Spontaneous
  Country: PL (occurrence: PL)
  Receive Date: 20180727
  Receipt Date: 20180727
  Transmission Date: 20181010
  Serious: Yes (Congenital Anomaly, Other)
  Sender: FDA-Public Use
  Company Number: PL-IMPAX LABORATORIES, INC-2018-IPXL-02549

PATIENT
  Sex: Male

DRUGS (2)
  1. ALBENZA [Suspect]
     Active Substance: ALBENDAZOLE
     Indication: EXPOSURE DURING PREGNANCY
     Dosage: UNK
     Route: 064
     Dates: start: 20170808
  2. ALBENZA [Suspect]
     Active Substance: ALBENDAZOLE
     Indication: ENTEROBIASIS

REACTIONS (3)
  - Laryngeal disorder [Unknown]
  - Exposure during pregnancy [Unknown]
  - Congenital heart valve incompetence [Unknown]
